FAERS Safety Report 6243519-3 (Version None)
Quarter: 2009Q2

REPORT INFORMATION
  Report Type: 
  Country: None (occurrence: None)
  Receive Date: 20090624
  Receipt Date: 20090611
  Transmission Date: 20091009
  Serious: Yes (Hospitalization, Other)
  Sender: FDA-Public Use
  Company Number: PHEH2009US06071

PATIENT
  Sex: Male

DRUGS (1)
  1. RECLAST [Suspect]
     Indication: OSTEITIS DEFORMANS
     Dosage: 5 MG, ONCE YEAR
     Route: 042
     Dates: start: 20090401

REACTIONS (3)
  - ABDOMINAL PAIN [None]
  - ATRIAL FIBRILLATION [None]
  - PANCREATITIS ACUTE [None]
